FAERS Safety Report 8317709-X (Version None)
Quarter: 2012Q2

REPORT INFORMATION
  Report Type: 
  Country: None (occurrence: None)
  Receive Date: 20120427
  Receipt Date: 20120423
  Transmission Date: 20120825
  Serious: No
  Sender: FDA-Public Use
  Company Number: US-PFIZER INC-2012100104

PATIENT
  Sex: Male
  Weight: 68.027 kg

DRUGS (3)
  1. LIPITOR [Suspect]
     Indication: BLOOD CHOLESTEROL INCREASED
     Dosage: HALF 80 MG DAILY
     Route: 048
     Dates: start: 20070401, end: 20090401
  2. LESCOL XL [Suspect]
     Indication: BLOOD CHOLESTEROL INCREASED
     Dosage: UNK, DAILY (HALF 80 MG TABLET)
     Route: 048
     Dates: start: 20090401
  3. HYDROCHLOROTHIAZIDE [Concomitant]
     Indication: HYPERTENSION
     Dosage: 75/50 MG DAILY
     Dates: start: 20070101

REACTIONS (2)
  - CHEST PAIN [None]
  - DRUG INEFFECTIVE [None]
